FAERS Safety Report 5301502-6 (Version None)
Quarter: 2007Q2

REPORT INFORMATION
  Report Type: 
  Country: None (occurrence: None)
  Receive Date: 20070412
  Receipt Date: 20070402
  Transmission Date: 20071010
  Serious: Yes (Hospitalization)
  Sender: FDA-Public Use
  Company Number: DSU-2007-00035

PATIENT
  Age: 56 Year
  Sex: Female
  Weight: 81.6475 kg

DRUGS (2)
  1. WELCHOL [Suspect]
     Indication: HYPERCHOLESTEROLAEMIA
     Dosage: 2500 MG (1250 MG, BID), PER ORAL
     Route: 048
     Dates: start: 20010101, end: 20070201
  2. DIURIL (CHLOROTHIAZIDE) (CHLOROTHIAZIDE) [Concomitant]

REACTIONS (4)
  - BLOOD CHOLESTEROL INCREASED [None]
  - DYSPEPSIA [None]
  - GALLBLADDER DISORDER [None]
  - GALLBLADDER POLYP [None]
